FAERS Safety Report 5937547-2 (Version None)
Quarter: 2008Q4

REPORT INFORMATION
  Report Type: 
  Country: None (occurrence: None)
  Receive Date: 20081031
  Receipt Date: 20081028
  Transmission Date: 20090506
  Serious: Yes (Death)
  Sender: FDA-Public Use
  Company Number: US-ABBOTT-08P-163-0484451-00

PATIENT
  Sex: Female

DRUGS (5)
  1. HYDROCODONE BITARTRATE [Suspect]
     Indication: PAIN
  2. FENTANYL CITRATE [Suspect]
     Indication: PAIN
     Route: 002
     Dates: end: 20060101
  3. FENTANYL CITRATE [Suspect]
     Indication: HEADACHE
  4. OXYCODONE HCL [Suspect]
     Indication: PAIN
  5. MORPHINE [Concomitant]
     Indication: DRUG USE FOR UNKNOWN INDICATION

REACTIONS (2)
  - ACCIDENTAL OVERDOSE [None]
  - CARDIOTOXICITY [None]
